FAERS Safety Report 4867245-8 (Version None)
Quarter: 2005Q4

REPORT INFORMATION
  Report Type: 
  Country: None (occurrence: None)
  Receive Date: 20051227
  Receipt Date: 20051227
  Transmission Date: 20060501
  Serious: Yes (Death)
  Sender: FDA-Public Use
  Company Number: None

PATIENT
  Age: 29 Year
  Sex: Male
  Weight: 90.7194 kg

DRUGS (1)
  1. OXYCODONE LIQUID [Suspect]

REACTIONS (4)
  - DRUG ABUSER [None]
  - INJURY ASPHYXIATION [None]
  - RESPIRATORY FAILURE [None]
  - SELF-MEDICATION [None]
